FAERS Safety Report 10900831 (Version 1)
Quarter: 2015Q1

REPORT INFORMATION
  Report Type: Spontaneous
  Country: US (occurrence: None)
  Receive Date: 20150303
  Receipt Date: 20150303
  Transmission Date: 20150721
  Serious: Yes (Death)
  Sender: FDA-Public Use
  Company Number: NL01PV15_38470

PATIENT
  Age: 56 Year
  Sex: Female

DRUGS (2)
  1. ZOLPIDEM [Suspect]
     Active Substance: ZOLPIDEM\ZOLPIDEM TARTRATE
  2. HYDROXYZINE (HYDROXYZINE) [Suspect]
     Active Substance: HYDROXYZINE HYDROCHLORIDE
     Dosage: 50 MG, QID (58 TABLETS TAKEN OVER 11 DAYS)

REACTIONS (5)
  - Intentional overdose [None]
  - Exposure via ingestion [None]
  - Completed suicide [None]
  - Toxicity to various agents [None]
  - Cardiomegaly [None]
